FAERS Safety Report 23450810 (Version 1)
Quarter: 2024Q1

REPORT INFORMATION
  Report Type: Spontaneous
  Country: FR (occurrence: FR)
  Receive Date: 20240129
  Receipt Date: 20240129
  Transmission Date: 20240409
  Serious: Yes (Death, Life-Threatening, Hospitalization)
  Sender: FDA-Public Use
  Company Number: FR-MACLEODS PHARMACEUTICALS US LTD-MAC2024045526

PATIENT
  Age: 38 Year
  Sex: Male
  Weight: 60 kg

DRUGS (4)
  1. METFORMIN [Suspect]
     Active Substance: METFORMIN HYDROCHLORIDE
     Indication: Diabetes mellitus
     Dosage: 1.6 GRAM, QD FOR 6 WEEK
     Route: 065
  2. METFORMIN [Suspect]
     Active Substance: METFORMIN HYDROCHLORIDE
     Dosage: 24 GRAM
     Route: 065
  3. PHENOBARBITAL [Suspect]
     Active Substance: PHENOBARBITAL
     Indication: Product used for unknown indication
     Dosage: UNK
     Route: 065
  4. OPIPRAMOL [Suspect]
     Active Substance: OPIPRAMOL
     Indication: Product used for unknown indication
     Dosage: UNK
     Route: 065

REACTIONS (6)
  - Coma [Unknown]
  - Suicide attempt [Unknown]
  - Overdose [Unknown]
  - Metabolic acidosis [Fatal]
  - Toxicity to various agents [Unknown]
  - Lactic acidosis [Fatal]
